FAERS Safety Report 16727272 (Version 5)
Quarter: 2021Q4

REPORT INFORMATION
  Report Type: Spontaneous
  Country: CA (occurrence: CA)
  Receive Date: 20190822
  Receipt Date: 20211030
  Transmission Date: 20220303
  Serious: Yes (Life-Threatening, Hospitalization, Other)
  Sender: FDA-Public Use
  Company Number: CA-AUROBINDO-AUR-APL-2019-054120

PATIENT
  Age: 52 Year
  Sex: Male

DRUGS (27)
  1. CITALOPRAM [Interacting]
     Active Substance: CITALOPRAM HYDROBROMIDE
     Indication: Depression
     Dosage: UNK
     Route: 048
  2. CITALOPRAM [Interacting]
     Active Substance: CITALOPRAM HYDROBROMIDE
     Indication: Product used for unknown indication
  3. CIPRALEX [Interacting]
     Active Substance: ESCITALOPRAM OXALATE
     Indication: Depression
     Dosage: 10 MILLIGRAM, ONCE A DAY
     Route: 065
  4. CIPRALEX [Interacting]
     Active Substance: ESCITALOPRAM OXALATE
     Dosage: 140 MILLIGRAM, ONCE A DAY
     Route: 048
  5. CIPRALEX [Interacting]
     Active Substance: ESCITALOPRAM OXALATE
     Dosage: 10.0 MILLIGRAM
     Route: 065
  6. DIAZEPAM [Interacting]
     Active Substance: DIAZEPAM
     Indication: Spinal stenosis
     Dosage: UNK
     Route: 048
  7. DIAZEPAM [Interacting]
     Active Substance: DIAZEPAM
     Dosage: 1800.0 MILLIGRAM
     Route: 048
  8. DIAZEPAM [Interacting]
     Active Substance: DIAZEPAM
     Dosage: 10.0 MILLIGRAM
     Route: 065
  9. LORAZEPAM [Interacting]
     Active Substance: LORAZEPAM
     Indication: Insomnia
     Dosage: 30.0 MILLIGRAM
     Route: 048
  10. LORAZEPAM [Interacting]
     Active Substance: LORAZEPAM
     Dosage: 1.0 MILLIGRAM
     Route: 048
  11. MORPHINE [Interacting]
     Active Substance: MORPHINE
     Indication: Spinal stenosis
     Dosage: 30 MILLIGRAM, ONCE A DAY (1 EVERY 1 DAYS)
     Route: 048
  12. MORPHINE [Interacting]
     Active Substance: MORPHINE
     Indication: Product used for unknown indication
     Dosage: 100.0 MILLIGRAM
     Route: 065
  13. MORPHINE [Interacting]
     Active Substance: MORPHINE
     Indication: Depression
     Dosage: 2640.0 MILLIGRAM
     Route: 065
  14. MORPHINE [Interacting]
     Active Substance: MORPHINE
     Dosage: 420.0 MILLIGRAM
     Route: 065
  15. MORPHINE [Interacting]
     Active Substance: MORPHINE
     Dosage: 9500.0 MILLIGRAM
     Route: 065
  16. MORPHINE [Interacting]
     Active Substance: MORPHINE
     Dosage: UNK
     Route: 048
  17. MORPHINE [Interacting]
     Active Substance: MORPHINE
     Dosage: 15.0 MILLIGRAM
     Route: 065
  18. MORPHINE [Interacting]
     Active Substance: MORPHINE
     Dosage: 30 MILLIGRAM, ONCE A DAY
     Route: 048
  19. OXYCODONE [Interacting]
     Active Substance: OXYCODONE
     Indication: Spinal stenosis
     Dosage: 10.0 MILLIGRAM
     Route: 065
  20. OXYCODONE [Interacting]
     Active Substance: OXYCODONE
     Dosage: UNK
     Route: 048
  21. OXYCODONE [Interacting]
     Active Substance: OXYCODONE
     Dosage: 20.0 MILLIGRAM
     Route: 048
  22. OXYCODONE [Interacting]
     Active Substance: OXYCODONE
     Dosage: UNK
     Route: 065
  23. OXYCODONE AND ACETAMINOPHEN [Interacting]
     Active Substance: ACETAMINOPHEN\OXYCODONE HYDROCHLORIDE
     Indication: Product used for unknown indication
     Dosage: UNK
     Route: 048
  24. ZOPICLONE [Interacting]
     Active Substance: ZOPICLONE
     Indication: Insomnia
     Dosage: 7.5 MILLIGRAM
     Route: 065
  25. ZOPICLONE [Interacting]
     Active Substance: ZOPICLONE
     Dosage: 187.5 MILLIGRAM
     Route: 048
  26. ZOPICLONE [Interacting]
     Active Substance: ZOPICLONE
     Dosage: 15 MILLIGRAM, ONCE A DAY (1 EVERY 1 DAYS)
     Route: 048
  27. ALTACE [Interacting]
     Active Substance: RAMIPRIL
     Indication: Product used for unknown indication
     Dosage: UNK
     Route: 065

REACTIONS (22)
  - Blood creatine phosphokinase increased [Recovered/Resolved]
  - Blood creatine increased [Recovered/Resolved]
  - Blood potassium increased [Recovered/Resolved]
  - Blood pressure decreased [Recovered/Resolved]
  - Bradycardia [Recovered/Resolved]
  - Coma [Recovered/Resolved]
  - Coma scale abnormal [Recovered/Resolved]
  - Drug interaction [Recovered/Resolved]
  - Drug screen positive [Recovering/Resolving]
  - Electrocardiogram QT prolonged [Recovered/Resolved]
  - Electrocardiogram abnormal [Recovered/Resolved]
  - Heart rate decreased [Recovered/Resolved]
  - Hyperkalaemia [Recovered/Resolved]
  - Hypotension [Recovered/Resolved]
  - Loss of consciousness [Recovered/Resolved]
  - Mechanical ventilation [Recovered/Resolved]
  - Opiates positive [Recovered/Resolved]
  - Oxygen saturation decreased [Recovered/Resolved]
  - Sinus tachycardia [Recovered/Resolved]
  - Intentional overdose [Recovered/Resolved]
  - Overdose [Recovered/Resolved]
  - Suicide attempt [Recovered/Resolved]
